FAERS Safety Report 22356108 (Version 1)
Quarter: 2023Q2

REPORT INFORMATION
  Report Type: Spontaneous
  Country: US (occurrence: US)
  Receive Date: 20230523
  Receipt Date: 20230523
  Transmission Date: 20230722
  Serious: No
  Sender: FDA-Public Use
  Company Number: US-FreseniusKabi-FK202306008

PATIENT
  Age: 81 Year
  Sex: Female

DRUGS (1)
  1. XYLOCAINE WITH EPINEPHRINE [Suspect]
     Active Substance: EPINEPHRINE BITARTRATE\LIDOCAINE HYDROCHLORIDE
     Indication: Local anaesthesia
     Dosage: 10 CC SUBCUTANEOUS FOR LOCAL ANESTHESIA, ADDITIONAL 5 CC AND THEN AN ADDITIONAL 5 CC. TOTAL 20 CC.
     Route: 058
     Dates: start: 20230427, end: 20230427

REACTIONS (1)
  - Therapeutic product effect decreased [None]

NARRATIVE: CASE EVENT DATE: 20230427
